FAERS Safety Report 7245582-X (Version None)
Quarter: 2011Q1

REPORT INFORMATION
  Report Type: 
  Country: None (occurrence: None)
  Receive Date: 20110126
  Receipt Date: 20110120
  Transmission Date: 20110831
  Serious: Yes (Other)
  Sender: FDA-Public Use
  Company Number: FR-PFIZER INC-2010176653

PATIENT
  Age: 78 Year
  Sex: Female

DRUGS (11)
  1. CACIT D3 [Suspect]
     Dosage: 1 DOSAGE FORMS
     Route: 048
  2. ZELITREX [Suspect]
     Dosage: UNK
     Route: 048
  3. INIPOMP [Suspect]
     Dosage: 40 MG, 1X/DAY
     Route: 048
  4. SPECIAFOLDINE [Suspect]
     Dosage: EVERYDAY EXCEPT MONDAYS
     Route: 048
  5. FEMARA [Suspect]
     Indication: BREAST CANCER
     Dosage: UNK
     Route: 048
  6. PLAQUENIL [Suspect]
     Indication: DERMATOMYOSITIS
     Dosage: 200 MG, 2X/DAY
     Route: 048
     Dates: start: 20090501, end: 20091001
  7. METOJECT [Suspect]
     Indication: DERMATOMYOSITIS
     Dosage: 10 MG, EVERY MONDAY
  8. CORTANCYL [Suspect]
     Indication: DERMATOMYOSITIS
     Dosage: 70 MG, (THEN DOSE REDUCED)
     Route: 048
     Dates: start: 20090701
  9. FOSAMAX [Suspect]
     Dosage: 1 DF, WEEKLY
     Route: 048
  10. ESCITALOPRAM [Suspect]
     Indication: DEPRESSION
     Dosage: UNK
     Route: 048
  11. APROVEL [Suspect]
     Indication: HYPERTENSION
     Dosage: UNK
     Route: 048

REACTIONS (1)
  - CATARACT [None]
